FAERS Safety Report 24621096 (Version 1)
Quarter: 2024Q4

REPORT INFORMATION
  Report Type: Spontaneous
  Country: US (occurrence: US)
  Receive Date: 20241114
  Receipt Date: 20241114
  Transmission Date: 20250115
  Serious: Yes (Other)
  Sender: SANOFI AVENTIS
  Company Number: US-SANOFI-02292980

PATIENT
  Sex: Female

DRUGS (1)
  1. LANTUS SOLOSTAR [Suspect]
     Active Substance: INSULIN GLARGINE
     Indication: Diabetes mellitus
     Dosage: SLIDING SCALE QD AND DRUG TREATMENT DURATION:ABOUT A YEAR 22 UNITS OF LANTUS SOLOSTAR DEPENDING ON H
     Dates: start: 2023

REACTIONS (3)
  - Cataract [Unknown]
  - Fatigue [Unknown]
  - Intentional product misuse [Unknown]
